FAERS Safety Report 8377777-6 (Version None)
Quarter: 2012Q2

REPORT INFORMATION
  Report Type: 
  Country: None (occurrence: None)
  Receive Date: 20120521
  Receipt Date: 20120509
  Transmission Date: 20120825
  Serious: Yes (Disabling, Other)
  Sender: FDA-Public Use
  Company Number: 2011MA002840

PATIENT
  Sex: Female

DRUGS (12)
  1. MICARDIS [Concomitant]
  2. KETOCONAZOLE [Concomitant]
  3. PREMARIN [Concomitant]
  4. MELOXICAM [Concomitant]
  5. METOPROLOL SUCCINATE EXTENDED RELEASE [Concomitant]
  6. NEXIUM [Concomitant]
  7. SKELAXIN [Concomitant]
  8. METOCLOPRAMIDE [Suspect]
     Indication: GASTROINTESTINAL DISORDER
     Dosage: 10 MG;TID;PO
     Route: 048
     Dates: start: 20070406, end: 20090427
  9. METOCLOPRAMIDE [Suspect]
     Indication: DYSPEPSIA
     Dosage: 10 MG;TID;PO
     Route: 048
     Dates: start: 20070406, end: 20090427
  10. METOCLOPRAMIDE [Suspect]
     Indication: ABDOMINAL DISTENSION
     Dosage: 10 MG;TID;PO
     Route: 048
     Dates: start: 20070406, end: 20090427
  11. HYDROCHLOROTHIAZIDE [Concomitant]
  12. MOMETASONE FUROATE [Concomitant]

REACTIONS (17)
  - FAMILY STRESS [None]
  - QUALITY OF LIFE DECREASED [None]
  - EXCESSIVE EYE BLINKING [None]
  - ACTIVITIES OF DAILY LIVING IMPAIRED [None]
  - MULTIPLE INJURIES [None]
  - DEFORMITY [None]
  - FEAR [None]
  - PAIN [None]
  - ECONOMIC PROBLEM [None]
  - UNEVALUABLE EVENT [None]
  - NERVOUS SYSTEM DISORDER [None]
  - EXTRAPYRAMIDAL DISORDER [None]
  - INCORRECT DRUG ADMINISTRATION DURATION [None]
  - ANXIETY [None]
  - TARDIVE DYSKINESIA [None]
  - PROTRUSION TONGUE [None]
  - DYSTONIA [None]
